FAERS Safety Report 25214187 (Version 3)
Quarter: 2025Q2

REPORT INFORMATION
  Report Type: Spontaneous
  Country: US (occurrence: US)
  Receive Date: 20250418
  Receipt Date: 20250429
  Transmission Date: 20250716
  Serious: Yes (Hospitalization, Other)
  Sender: PFIZER
  Company Number: US-PFIZER INC-202500078821

PATIENT
  Age: 61 Year
  Sex: Female

DRUGS (4)
  1. PAXLOVID [Interacting]
     Active Substance: NIRMATRELVIR\RITONAVIR
     Indication: COVID-19 treatment
  2. TACROLIMUS [Interacting]
     Active Substance: TACROLIMUS
  3. MYCOPHENOLATE MOFETIL [Concomitant]
     Active Substance: MYCOPHENOLATE MOFETIL
  4. PREDNISONE [Concomitant]
     Active Substance: PREDNISONE

REACTIONS (8)
  - Blood creatinine increased [Recovered/Resolved]
  - White blood cells urine positive [Unknown]
  - Urinary casts [Unknown]
  - Urine osmolarity decreased [Unknown]
  - Urine sodium decreased [Unknown]
  - Renal impairment [Unknown]
  - Labelled drug-drug interaction medication error [Unknown]
  - Drug level increased [Recovered/Resolved]
